FAERS Safety Report 11690160 (Version 7)
Quarter: 2016Q3

REPORT INFORMATION
  Report Type: Report from Study
  Country: BR (occurrence: BR)
  Receive Date: 20151102
  Receipt Date: 20160915
  Transmission Date: 20161109
  Serious: Yes (Disabling, Other)
  Sender: FDA-Public Use
  Company Number: BR-ABBVIE-15K-020-1490982-00

PATIENT
  Age: 62 Year
  Sex: Female
  Weight: 73 kg

DRUGS (33)
  1. HUMIRA [Suspect]
     Active Substance: ADALIMUMAB
     Indication: RHEUMATOID ARTHRITIS
     Route: 058
     Dates: start: 20120712
  2. CONCARDIO [Concomitant]
     Active Substance: BISOPROLOL FUMARATE
     Indication: HYPERTENSION
     Route: 048
     Dates: start: 201510
  3. GARDENAL [Concomitant]
     Active Substance: PHENOBARBITAL
     Indication: SEIZURE
     Route: 048
     Dates: start: 2006
  4. OMEGA 3 [Concomitant]
     Active Substance: OMEGA-3 FATTY ACIDS
     Indication: CARDIAC DISORDER
  5. HYDROCHLOROTHIAZIDE. [Concomitant]
     Active Substance: HYDROCHLOROTHIAZIDE
     Indication: HYPERTENSION
     Route: 048
     Dates: start: 2008
  6. CONCARDIO [Concomitant]
     Active Substance: BISOPROLOL FUMARATE
     Indication: CARDIAC DISORDER
     Route: 048
     Dates: start: 2016
  7. CORTISONE [Concomitant]
     Active Substance: CORTISONE\HYDROCORTISONE
     Indication: ARTHROPATHY
     Route: 048
     Dates: start: 2010
  8. SAFFLOWER OIL [Suspect]
     Active Substance: SAFFLOWER OIL
     Indication: BLOOD CHOLESTEROL
     Route: 048
  9. LABIRIN [Concomitant]
     Active Substance: BETAHISTINE
     Indication: LABYRINTHITIS
     Route: 048
  10. PREDNISONE. [Concomitant]
     Active Substance: PREDNISONE
     Indication: RHEUMATOID ARTHRITIS
     Route: 048
     Dates: start: 2012
  11. NIMESULIDE [Concomitant]
     Active Substance: NIMESULIDE
     Indication: PAIN IN EXTREMITY
     Route: 048
  12. CORTISONE [Concomitant]
     Active Substance: CORTISONE\HYDROCORTISONE
     Route: 048
  13. GINKGO BILOBA [Concomitant]
     Active Substance: GINKGO
     Route: 048
  14. HUMIRA [Suspect]
     Active Substance: ADALIMUMAB
     Route: 058
  15. LABIRIN [Concomitant]
     Active Substance: BETAHISTINE
     Route: 048
  16. GARDENAL [Concomitant]
     Active Substance: PHENOBARBITAL
     Indication: SEIZURE
     Route: 048
  17. LOSARTAN. [Concomitant]
     Active Substance: LOSARTAN
     Indication: HYPERTENSION
     Route: 048
     Dates: start: 2008
  18. CORTISONE [Concomitant]
     Active Substance: CORTISONE\HYDROCORTISONE
     Indication: ARTHRITIS
     Route: 048
  19. CONCOR [Concomitant]
     Active Substance: BISOPROLOL FUMARATE
     Indication: HYPERTENSION
     Route: 048
     Dates: start: 201508
  20. GARDENAL [Concomitant]
     Active Substance: PHENOBARBITAL
     Indication: CEREBRAL DISORDER
     Route: 048
  21. GINKGO BILOBA [Concomitant]
     Active Substance: GINKGO
     Indication: LABYRINTHITIS
     Route: 048
     Dates: start: 1988
  22. GINKGO BILOBA [Concomitant]
     Active Substance: GINKGO
     Indication: HYPERTENSION
     Route: 048
     Dates: start: 20151022
  23. NIMESULIDE [Concomitant]
     Active Substance: NIMESULIDE
     Indication: RHEUMATOID ARTHRITIS
  24. PHENOBARBITAL. [Concomitant]
     Active Substance: PHENOBARBITAL
     Indication: CEREBRAL DISORDER
     Route: 048
  25. DORIL [Concomitant]
     Indication: HEADACHE
     Route: 048
  26. OMEGA 3 [Concomitant]
     Active Substance: OMEGA-3 FATTY ACIDS
     Indication: ARTHRITIS
     Route: 048
     Dates: start: 2012
  27. OMEGA 3 [Concomitant]
     Active Substance: OMEGA-3 FATTY ACIDS
     Indication: CEREBRAL DISORDER
  28. OXCARBAZEPINE. [Suspect]
     Active Substance: OXCARBAZEPINE
     Indication: SEIZURE
     Route: 048
     Dates: start: 2015
  29. MICARDIS [Concomitant]
     Active Substance: TELMISARTAN
     Indication: HYPERTENSION
     Dosage: FORM STRENGTH:  80MG/5M
     Route: 048
     Dates: start: 201508
  30. PREDNISONE. [Concomitant]
     Active Substance: PREDNISONE
     Indication: ARTHRITIS
     Route: 048
  31. HYDROCHLOROTHIAZIDE. [Concomitant]
     Active Substance: HYDROCHLOROTHIAZIDE
     Indication: DIURETIC THERAPY
  32. GARDENAL [Concomitant]
     Active Substance: PHENOBARBITAL
     Indication: HYPERTENSION
     Route: 048
  33. VERTIX [Concomitant]
     Indication: DIZZINESS
     Route: 048

REACTIONS (48)
  - Bone disorder [Unknown]
  - Abscess limb [Not Recovered/Not Resolved]
  - Musculoskeletal stiffness [Unknown]
  - Peripheral swelling [Unknown]
  - Pain [Unknown]
  - Bursitis [Recovered/Resolved]
  - Oedema peripheral [Not Recovered/Not Resolved]
  - Pain in extremity [Unknown]
  - Speech disorder [Unknown]
  - Musculoskeletal pain [Not Recovered/Not Resolved]
  - Weight decreased [Unknown]
  - Skin wrinkling [Unknown]
  - Joint swelling [Unknown]
  - Tendonitis [Recovered/Resolved]
  - Labyrinthitis [Recovered/Resolved]
  - Pain in extremity [Recovering/Resolving]
  - Pain in extremity [Unknown]
  - Arthropathy [Not Recovered/Not Resolved]
  - Muscle spasms [Not Recovered/Not Resolved]
  - Muscle spasms [Not Recovered/Not Resolved]
  - Hypertension [Recovering/Resolving]
  - Arthralgia [Recovered/Resolved]
  - Bursitis [Recovering/Resolving]
  - Arthralgia [Unknown]
  - Tremor [Not Recovered/Not Resolved]
  - Dizziness [Recovered/Resolved]
  - Osteoarthritis [Unknown]
  - Coordination abnormal [Not Recovered/Not Resolved]
  - Crying [Unknown]
  - Joint swelling [Recovering/Resolving]
  - Arthropathy [Unknown]
  - Grip strength decreased [Not Recovered/Not Resolved]
  - Rheumatoid arthritis [Unknown]
  - Tremor [Unknown]
  - Activities of daily living impaired [Recovering/Resolving]
  - Joint range of motion decreased [Unknown]
  - Synovial disorder [Unknown]
  - Feeling abnormal [Unknown]
  - Musculoskeletal pain [Recovering/Resolving]
  - Arthritis [Not Recovered/Not Resolved]
  - Tremor [Not Recovered/Not Resolved]
  - Psychomotor skills impaired [Unknown]
  - Mobility decreased [Recovering/Resolving]
  - Tendonitis [Recovering/Resolving]
  - Limb mass [Unknown]
  - Injury [Unknown]
  - Injection site pain [Not Recovered/Not Resolved]
  - Muscle spasms [Recovering/Resolving]

NARRATIVE: CASE EVENT DATE: 20120712
